FAERS Safety Report 6503984-0 (Version None)
Quarter: 2009Q4

REPORT INFORMATION
  Report Type: 
  Country: None (occurrence: None)
  Receive Date: 20091216
  Receipt Date: 20091216
  Transmission Date: 20100525
  Serious: Yes (Other)
  Sender: FDA-Public Use
  Company Number: None

PATIENT
  Sex: Male
  Weight: 79.3795 kg

DRUGS (1)
  1. CLINDAMYCIN [Suspect]
     Indication: TOOTH INFECTION
     Dosage: 30 3/DAY ORAL
     Route: 048
     Dates: start: 20091123, end: 20091128

REACTIONS (2)
  - CHEST PAIN [None]
  - DYSPEPSIA [None]
